FAERS Safety Report 13624492 (Version 1)
Quarter: 2017Q2

REPORT INFORMATION
  Report Type: Spontaneous
  Country: US (occurrence: US)
  Receive Date: 20170608
  Receipt Date: 20170608
  Transmission Date: 20170830
  Serious: Yes (Other)
  Sender: FDA-Public Use
  Company Number: US-ALVOGEN-2017-ALVOGEN-092288

PATIENT
  Sex: Male
  Weight: 58.97 kg

DRUGS (9)
  1. OXYCODONE [Suspect]
     Active Substance: OXYCODONE
     Indication: PAIN
     Dosage: DOSE DECREASED TO 30-45MG/DAY
  2. DILAUDID [Suspect]
     Active Substance: HYDROMORPHONE HYDROCHLORIDE
     Indication: PAIN
     Route: 048
     Dates: end: 201703
  3. LYRICA [Suspect]
     Active Substance: PREGABALIN
     Indication: FIBROMYALGIA
     Dates: end: 201612
  4. LYRICA [Suspect]
     Active Substance: PREGABALIN
     Indication: NEURALGIA
     Dates: end: 201612
  5. FENTANYL. [Suspect]
     Active Substance: FENTANYL
     Indication: PAIN
     Dosage: 75MCG/HR ON A 48 HOUR ROTATION INSTEAD OF 72 HR.
     Dates: end: 20170308
  6. DIAZEPAM. [Suspect]
     Active Substance: DIAZEPAM
     Indication: AGITATION
     Route: 048
     Dates: end: 20170313
  7. OXYCODONE [Suspect]
     Active Substance: OXYCODONE
     Indication: PAIN
     Dosage: 90-120 MG/DAY
  8. LYRICA [Suspect]
     Active Substance: PREGABALIN
     Indication: SPINAL CORD NEOPLASM
     Dates: end: 201612
  9. RITALIN [Suspect]
     Active Substance: METHYLPHENIDATE HYDROCHLORIDE
     Indication: LETHARGY
     Route: 048
     Dates: start: 201603, end: 201702

REACTIONS (5)
  - Anger [Recovered/Resolved]
  - Irritability [Recovered/Resolved]
  - Lethargy [Unknown]
  - Suicidal ideation [Recovered/Resolved]
  - Vision blurred [Not Recovered/Not Resolved]

NARRATIVE: CASE EVENT DATE: 2016
